FAERS Safety Report 5087212-1 (Version None)
Quarter: 2006Q3

REPORT INFORMATION
  Report Type: 
  Country: None (occurrence: None)
  Receive Date: 20060821
  Receipt Date: 20060808
  Transmission Date: 20061208
  Serious: Yes (Death, Other)
  Sender: FDA-Public Use
  Company Number: 226231

PATIENT
  Age: 68 Year
  Sex: Female

DRUGS (5)
  1. RITUXAN [Suspect]
     Indication: NON-HODGKIN'S LYMPHOMA
     Dosage: 500 MG, INTRAVENOUS
     Route: 042
     Dates: start: 20020517
  2. FLUDARA [Suspect]
     Indication: NON-HODGKIN'S LYMPHOMA
     Dosage: 32 MG, INTRAVENOUS
     Route: 042
     Dates: start: 20020417
  3. MITOXANTRONE [Suspect]
     Indication: NON-HODGKIN'S LYMPHOMA
     Dosage: 13 MG, INTRAVENOUS
     Route: 042
     Dates: start: 20020417
  4. DEXAMETHASONE TAB [Suspect]
     Indication: NON-HODGKIN'S LYMPHOMA
     Dosage: 25 MG, INTRAVENOUS
     Route: 042
     Dates: start: 20020417
  5. NEUPOGEN [Concomitant]

REACTIONS (7)
  - DISEASE RECURRENCE [None]
  - FUNGAL SEPSIS [None]
  - HEPATIC ATROPHY [None]
  - HEPATIC CIRRHOSIS [None]
  - HEPATIC FAILURE [None]
  - HEPATITIS B [None]
  - PROTHROMBIN TIME PROLONGED [None]
